FAERS Safety Report 11068800 (Version 1)
Quarter: 2015Q2

REPORT INFORMATION
  Report Type: Spontaneous
  Country: None (occurrence: None)
  Receive Date: 20150424
  Receipt Date: 20150424
  Transmission Date: 20150821
  Serious: Yes (Life-Threatening, Hospitalization)
  Sender: FDA-Public Use
  Company Number: None

PATIENT
  Age: 57 Year
  Sex: Male

DRUGS (1)
  1. BOTOX [Suspect]
     Active Substance: ONABOTULINUMTOXINA
     Indication: MIGRAINE
     Dates: start: 20141104, end: 20150421

REACTIONS (5)
  - Ventricular fibrillation [None]
  - Pulseless electrical activity [None]
  - Fall [None]
  - Influenza like illness [None]
  - Cardio-respiratory arrest [None]

NARRATIVE: CASE EVENT DATE: 20150422
